FAERS Safety Report 4613182-3 (Version None)
Quarter: 2005Q1

REPORT INFORMATION
  Report Type: 
  Country: None (occurrence: None)
  Receive Date: 20050316
  Receipt Date: 20050303
  Transmission Date: 20050727
  Serious: Yes (Disabling, Other)
  Sender: FDA-Public Use
  Company Number: 2005040580

PATIENT
  Age: 43 Year
  Sex: Male
  Weight: 68.0396 kg

DRUGS (3)
  1. NORVASC [Suspect]
     Indication: HYPERTENSION
     Dosage: SEE IMAGE
     Route: 048
     Dates: start: 19980101, end: 20030101
  2. NORVASC [Suspect]
     Indication: HYPERTENSION
     Dosage: SEE IMAGE
     Route: 048
     Dates: start: 20030101
  3. . [Concomitant]

REACTIONS (3)
  - CONDITION AGGRAVATED [None]
  - OSTEOPOROSIS [None]
  - PARATHYROID DISORDER [None]
